FAERS Safety Report 10248915 (Version 1)
Quarter: 2014Q2

REPORT INFORMATION
  Report Type: Spontaneous
  Country: US (occurrence: US)
  Receive Date: 20140620
  Receipt Date: 20140620
  Transmission Date: 20141212
  Serious: Yes (Other)
  Sender: FDA-Public Use
  Company Number: US-JNJFOC-20140606132

PATIENT
  Sex: Female

DRUGS (1)
  1. ELMIRON [Suspect]
     Indication: PRODUCT USED FOR UNKNOWN INDICATION
     Dosage: 400 MG PER DAY
     Route: 048

REACTIONS (7)
  - Fall [Recovered/Resolved]
  - Tendonitis [Not Recovered/Not Resolved]
  - Infection [Unknown]
  - Drug prescribing error [Unknown]
  - Drug prescribing error [Unknown]
  - Inappropriate schedule of drug administration [Not Recovered/Not Resolved]
  - Incorrect dose administered [Not Recovered/Not Resolved]
